FAERS Safety Report 6088798-0 (Version None)
Quarter: 2009Q1

REPORT INFORMATION
  Report Type: 
  Country: None (occurrence: None)
  Receive Date: 20090224
  Receipt Date: 20090218
  Transmission Date: 20090719
  Serious: Yes (Disabling, Other)
  Sender: FDA-Public Use
  Company Number: DK-BAYER-200829072GPV

PATIENT
  Age: 60 Year
  Sex: Female

DRUGS (5)
  1. MAGNEVIST [Suspect]
     Indication: NUCLEAR MAGNETIC RESONANCE IMAGING
     Route: 042
     Dates: start: 20060626, end: 20060626
  2. MAGNEVIST [Suspect]
     Route: 065
  3. MAGNEVIST [Suspect]
     Route: 065
     Dates: start: 20010101
  4. MAGNEVIST [Suspect]
     Route: 065
     Dates: start: 19990101
  5. OMNISCAN [Suspect]
     Indication: SCAN WITH CONTRAST
     Dosage: TOTAL DAILY DOSE: 10 ML
     Route: 042
     Dates: start: 20020115, end: 20020115

REACTIONS (9)
  - ABDOMINAL PAIN [None]
  - ARTHRALGIA [None]
  - MUSCLE ATROPHY [None]
  - NEPHROGENIC SYSTEMIC FIBROSIS [None]
  - OEDEMA PERIPHERAL [None]
  - ONYCHOMYCOSIS [None]
  - PAIN OF SKIN [None]
  - SKIN HYPERTROPHY [None]
  - SKIN LESION [None]
